FAERS Safety Report 8460554-5 (Version None)
Quarter: 2012Q2

REPORT INFORMATION
  Report Type: 
  Country: None (occurrence: None)
  Receive Date: 20120622
  Receipt Date: 20120326
  Transmission Date: 20120825
  Serious: Yes (Other)
  Sender: FDA-Public Use
  Company Number: US-ASTRAZENECA-2012SE14914

PATIENT
  Age: 68 Year
  Sex: Female
  Weight: 87.1 kg

DRUGS (3)
  1. NIACIN [Concomitant]
  2. BRILINTA [Suspect]
     Indication: ACUTE CORONARY SYNDROME
     Route: 048
  3. TRICOR [Concomitant]

REACTIONS (2)
  - DRUG ERUPTION [None]
  - DYSPNOEA [None]
